FAERS Safety Report 5027860-8 (Version None)
Quarter: 2006Q2

REPORT INFORMATION
  Report Type: 
  Country: None (occurrence: None)
  Receive Date: 20060616
  Receipt Date: 20060215
  Transmission Date: 20061013
  Serious: Yes (Hospitalization)
  Sender: FDA-Public Use
  Company Number: US-ROCHE-436880

PATIENT
  Age: 63 Year
  Sex: Male

DRUGS (2)
  1. PEGASYS [Suspect]
     Dosage: STRENGTH REPORTED AS 180 MCG/0.5 ML. FREQUENCY REPORTED AS EVERY WEEK.
     Route: 058
     Dates: start: 20050509, end: 20060415
  2. COPEGUS [Suspect]
     Route: 048
     Dates: start: 20050509, end: 20060415

REACTIONS (4)
  - ANAEMIA [None]
  - FATIGUE [None]
  - NEPHROLITHIASIS [None]
  - RASH PRURITIC [None]
